FAERS Safety Report 24980773 (Version 1)
Quarter: 2025Q1

REPORT INFORMATION
  Report Type: Spontaneous
  Country: US (occurrence: None)
  Receive Date: 20250214
  Receipt Date: 20250214
  Transmission Date: 20250409
  Serious: Yes (Death)
  Sender: FDA-CTU
  Company Number: None

PATIENT
  Age: 76 Year
  Sex: Male

DRUGS (1)
  1. LENALIDOMIDE [Suspect]
     Active Substance: LENALIDOMIDE
     Indication: Plasma cell myeloma
     Route: 048
     Dates: start: 20240916, end: 20250101

REACTIONS (4)
  - Unresponsive to stimuli [None]
  - Myocardial infarction [None]
  - Cerebrovascular accident [None]
  - Arteriosclerosis [None]

NARRATIVE: CASE EVENT DATE: 20250102
